FAERS Safety Report 8020041-5 (Version None)
Quarter: 2012Q1

REPORT INFORMATION
  Report Type: 
  Country: None (occurrence: None)
  Receive Date: 20120103
  Receipt Date: 20111229
  Transmission Date: 20120608
  Serious: Yes (Other)
  Sender: FDA-Public Use
  Company Number: US-ELI_LILLY_AND_COMPANY-US201112007760

PATIENT
  Sex: Female

DRUGS (2)
  1. AVASTIN [Concomitant]
  2. ALIMTA [Suspect]
     Indication: LUNG NEOPLASM MALIGNANT
     Dosage: UNK, UNKNOWN
     Dates: start: 20110801

REACTIONS (3)
  - AMNESIA [None]
  - WHITE BLOOD CELL COUNT DECREASED [None]
  - MENTAL STATUS CHANGES [None]
